FAERS Safety Report 19974515 (Version 2)
Quarter: 2021Q4

REPORT INFORMATION
  Report Type: Spontaneous
  Country: US (occurrence: US)
  Receive Date: 20211020
  Receipt Date: 20211101
  Transmission Date: 20220303
  Serious: Yes (Other)
  Sender: FDA-Public Use
  Company Number: US-PFIZER INC-202101324283

PATIENT
  Age: 67 Year
  Sex: Male

DRUGS (2)
  1. TOZINAMERAN [Suspect]
     Active Substance: TOZINAMERAN
     Indication: COVID-19 immunisation
     Dosage: DOSE 2 (INITIAL PFIZER DOSE), SINGLE
  2. RITUXIMAB [Suspect]
     Active Substance: RITUXIMAB
     Indication: Granulomatosis with polyangiitis
     Dosage: UNK (CUMULATIVE RTX DOSE 8.2 G)

REACTIONS (3)
  - B-lymphocyte count decreased [Unknown]
  - Off label use [Unknown]
  - Interchange of vaccine products [Unknown]
